FAERS Safety Report 24268038 (Version 5)
Quarter: 2025Q1

REPORT INFORMATION
  Report Type: Spontaneous
  Country: US (occurrence: US)
  Receive Date: 20240830
  Receipt Date: 20250310
  Transmission Date: 20250409
  Serious: No
  Sender: PFIZER
  Company Number: US-PFIZER INC-202400243111

PATIENT
  Age: 46 Year
  Sex: Female

DRUGS (2)
  1. GENOTROPIN [Suspect]
     Active Substance: SOMATROPIN
     Dosage: 0.4 MG, DAILY
  2. GENOTROPIN [Suspect]
     Active Substance: SOMATROPIN
     Dosage: 0.4 MG, NIGHTLY
     Route: 058

REACTIONS (4)
  - Device information output issue [Unknown]
  - Device power source issue [Unknown]
  - Device mechanical issue [Unknown]
  - Injection site haemorrhage [Unknown]
